FAERS Safety Report 9795487 (Version 1)
Quarter: 2014Q1

REPORT INFORMATION
  Report Type: Spontaneous
  Country: US (occurrence: US)
  Receive Date: 20140103
  Receipt Date: 20140103
  Transmission Date: 20141002
  Serious: Yes (Other)
  Sender: FDA-Public Use
  Company Number: US-ELI_LILLY_AND_COMPANY-US201312007831

PATIENT
  Sex: Male

DRUGS (1)
  1. AXIRON [Suspect]
     Indication: PRODUCT USED FOR UNKNOWN INDICATION
     Dosage: UNK, UNKNOWN
     Route: 065
     Dates: start: 20120310

REACTIONS (3)
  - Prostatomegaly [Unknown]
  - Prostate cancer [Unknown]
  - Prostatic specific antigen increased [Unknown]
